FAERS Safety Report 11401195 (Version 2)
Quarter: 2015Q3

REPORT INFORMATION
  Report Type: Report from Study
  Country: US (occurrence: US)
  Receive Date: 20150820
  Receipt Date: 20150925
  Transmission Date: 20151125
  Serious: Yes (Hospitalization)
  Sender: FDA-Public Use
  Company Number: US-GILEAD-2015-0168193

PATIENT
  Age: 68 Year
  Sex: Female
  Weight: 55.8 kg

DRUGS (42)
  1. BENDAMUSTINE [Suspect]
     Active Substance: BENDAMUSTINE
     Dosage: 140 MG, CYCLICAL
     Route: 042
     Dates: start: 20150323, end: 20150323
  2. BENDAMUSTINE [Suspect]
     Active Substance: BENDAMUSTINE
     Dosage: 140 MG, CYCLICAL
     Route: 042
     Dates: start: 20150519, end: 20150519
  3. TYLENOL [Concomitant]
     Active Substance: ACETAMINOPHEN
     Route: 048
     Dates: start: 20141125
  4. RITUXIMAB [Suspect]
     Active Substance: RITUXIMAB
     Dosage: 775 MG, CYCLICAL
     Route: 042
     Dates: start: 20141222, end: 20141222
  5. ROSUVASTATIN CALCIUM. [Concomitant]
     Active Substance: ROSUVASTATIN CALCIUM
     Indication: HYPERLIPIDAEMIA
     Route: 048
     Dates: start: 2012
  6. FOLIC ACID. [Concomitant]
     Active Substance: FOLIC ACID
     Indication: SUPPLEMENTATION THERAPY
     Route: 048
     Dates: start: 20150527
  7. BENDAMUSTINE [Suspect]
     Active Substance: BENDAMUSTINE
     Dosage: 140 MG, CYCLICAL
     Route: 042
     Dates: start: 20150119, end: 20150119
  8. BENDAMUSTINE [Suspect]
     Active Substance: BENDAMUSTINE
     Dosage: 140 MG, CYCLICAL
     Route: 042
     Dates: start: 20150421, end: 20150421
  9. DIPHENHYDRAMINE. [Concomitant]
     Active Substance: DIPHENHYDRAMINE
     Route: 048
     Dates: start: 20141125
  10. ARTIFICIAL TEARS                   /00445101/ [Concomitant]
     Route: 031
     Dates: start: 20141125
  11. CALCIUM CARBONATE. [Concomitant]
     Active Substance: CALCIUM CARBONATE
     Route: 048
     Dates: start: 2004
  12. BACITRACIN. [Concomitant]
     Active Substance: BACITRACIN
     Indication: HAEMORRHOIDS
     Route: 061
     Dates: start: 20150518
  13. VITAMIN C [Concomitant]
     Active Substance: ASCORBIC ACID
     Indication: SUPPLEMENTATION THERAPY
     Route: 048
     Dates: start: 201405
  14. IDELALISIB [Suspect]
     Active Substance: IDELALISIB
     Indication: CHRONIC LYMPHOCYTIC LEUKAEMIA
     Dosage: 150 MG, BID
     Route: 048
     Dates: start: 20141125, end: 20150215
  15. IDELALISIB [Suspect]
     Active Substance: IDELALISIB
     Dosage: 100 MG, BID
     Route: 048
     Dates: start: 20150822
  16. BENDAMUSTINE [Suspect]
     Active Substance: BENDAMUSTINE
     Dosage: 140 MG, CYCLICAL
     Route: 042
     Dates: start: 20150420, end: 20150420
  17. BENDAMUSTINE [Suspect]
     Active Substance: BENDAMUSTINE
     Dosage: 140 MG, CYCLICAL
     Route: 042
     Dates: start: 20150518, end: 20150518
  18. DIPHENHYDRAMINE. [Concomitant]
     Active Substance: DIPHENHYDRAMINE
     Indication: INSOMNIA
     Dosage: UNK
     Route: 048
     Dates: start: 2002
  19. VUSION [Concomitant]
     Active Substance: MICONAZOLE NITRATE\PETROLATUM\ZINC OXIDE
     Indication: ANAL FISSURE
     Route: 061
     Dates: start: 20150219
  20. LOPERAMIDE [Concomitant]
     Active Substance: LOPERAMIDE
     Indication: DIARRHOEA
     Route: 048
     Dates: start: 20150215
  21. FISH OIL [Concomitant]
     Active Substance: FISH OIL
     Indication: SUPPLEMENTATION THERAPY
     Route: 048
     Dates: start: 2004
  22. MULTIVITAMIN                       /00097801/ [Concomitant]
     Active Substance: VITAMINS
     Indication: SUPPLEMENTATION THERAPY
     Route: 048
     Dates: start: 2004
  23. BENDAMUSTINE [Suspect]
     Active Substance: BENDAMUSTINE
     Dosage: 140 MG, CYCLICAL
     Route: 042
     Dates: start: 20150120, end: 20150120
  24. RITUXIMAB [Suspect]
     Active Substance: RITUXIMAB
     Dosage: 775 MG, CYCLICAL
     Route: 042
     Dates: start: 20150119, end: 20150119
  25. COMPAZINE                          /00013304/ [Concomitant]
     Indication: NAUSEA
     Route: 048
     Dates: start: 20141125
  26. IBUPROFEN. [Concomitant]
     Active Substance: IBUPROFEN
     Indication: PYREXIA
     Route: 048
     Dates: start: 20150204
  27. IBUPROFEN. [Concomitant]
     Active Substance: IBUPROFEN
     Indication: HEADACHE
  28. MELATONIN [Concomitant]
     Active Substance: MELATONIN
     Indication: INSOMNIA
     Route: 048
     Dates: start: 2002
  29. BENDAMUSTINE [Suspect]
     Active Substance: BENDAMUSTINE
     Indication: CHRONIC LYMPHOCYTIC LEUKAEMIA
     Dosage: 140 MG, CYCLICAL
     Route: 042
     Dates: start: 20141125, end: 20141125
  30. BENDAMUSTINE [Suspect]
     Active Substance: BENDAMUSTINE
     Dosage: 140 MG, CYCLICAL
     Route: 042
     Dates: start: 20141223, end: 20141223
  31. BENDAMUSTINE [Suspect]
     Active Substance: BENDAMUSTINE
     Dosage: 140 MG, CYCLICAL
     Route: 042
     Dates: start: 20150324, end: 20150324
  32. RITUXIMAB [Suspect]
     Active Substance: RITUXIMAB
     Indication: CHRONIC LYMPHOCYTIC LEUKAEMIA
     Dosage: 581 MG, CYCLICAL
     Route: 042
     Dates: start: 20141125, end: 20141125
  33. RITUXIMAB [Suspect]
     Active Substance: RITUXIMAB
     Dosage: 775 MG, CYCLICAL
     Route: 042
     Dates: start: 20150323, end: 20150323
  34. RITUXIMAB [Suspect]
     Active Substance: RITUXIMAB
     Dosage: 775 MG, CYCLICAL
     Route: 042
     Dates: start: 20150420, end: 20150420
  35. ALOXI [Concomitant]
     Active Substance: PALONOSETRON HYDROCHLORIDE
     Route: 042
     Dates: start: 20141125
  36. IDELALISIB [Suspect]
     Active Substance: IDELALISIB
     Dosage: 100 MG, BID
     Route: 048
     Dates: start: 20150323, end: 20150814
  37. BENDAMUSTINE [Suspect]
     Active Substance: BENDAMUSTINE
     Dosage: 140 MG, CYCLICAL
     Route: 042
     Dates: start: 20141126, end: 20141126
  38. BENDAMUSTINE [Suspect]
     Active Substance: BENDAMUSTINE
     Dosage: 140 MG, CYCLICAL
     Route: 042
     Dates: start: 20141222, end: 20141222
  39. RITUXIMAB [Suspect]
     Active Substance: RITUXIMAB
     Dosage: 775 MG, CYCLICAL
     Route: 042
     Dates: start: 20150518, end: 20150518
  40. DILTIAZEM HCL [Concomitant]
     Active Substance: DILTIAZEM HYDROCHLORIDE
     Indication: HYPERTENSION
     Route: 048
     Dates: start: 201402
  41. VITAMIN D                          /00107901/ [Concomitant]
     Active Substance: ERGOCALCIFEROL
     Indication: SUPPLEMENTATION THERAPY
     Route: 048
     Dates: start: 2014
  42. LORAZEPAM. [Concomitant]
     Active Substance: LORAZEPAM
     Indication: ANXIETY
     Route: 048
     Dates: start: 20150122

REACTIONS (1)
  - Herpes zoster [Recovered/Resolved]

NARRATIVE: CASE EVENT DATE: 20150814
